FAERS Safety Report 19793468 (Version 3)
Quarter: 2023Q1

REPORT INFORMATION
  Report Type: Report from Study
  Country: AT (occurrence: AT)
  Receive Date: 20210906
  Receipt Date: 20230224
  Transmission Date: 20230417
  Serious: Yes (Other)
  Sender: FDA-Public Use
  Company Number: AT-PFM-2021-08658

PATIENT
  Age: 61 Year
  Sex: Female

DRUGS (2)
  1. ENCORAFENIB [Suspect]
     Active Substance: ENCORAFENIB
     Indication: Malignant melanoma
     Dosage: 450 MG, DAILY
     Route: 065
     Dates: end: 20200511
  2. BINIMETINIB [Suspect]
     Active Substance: BINIMETINIB
     Indication: Malignant melanoma
     Dosage: 45 MG, BID (2/DAY)
     Route: 065
     Dates: end: 20200511

REACTIONS (1)
  - Hepatotoxicity [Unknown]
